FAERS Safety Report 7812452 (Version 2)
Quarter: 2014Q3

REPORT INFORMATION
  Report Type: Spontaneous
  Country: IT (occurrence: None)
  Receive Date: 20110128
  Receipt Date: 20140822
  Transmission Date: 20150326
  Serious: Yes (Other)
  Sender: FDA-Public Use
  Company Number: 805242

PATIENT
  Age: 59 Year
  Sex: Female

DRUGS (2)
  1. CAPECITABINE [Concomitant]
     Active Substance: CAPECITABINE
  2. OXALIPLATIN. [Suspect]
     Active Substance: OXALIPLATIN
     Indication: RECTAL CANCER
     Dosage: 160 MG MILLIGRAM(S), INTRAVENOUS
     Route: 042
     Dates: start: 20101228, end: 20101228

REACTIONS (1)
  - Idiosyncratic drug reaction [None]

NARRATIVE: CASE EVENT DATE: 20101228
